FAERS Safety Report 19959336 (Version 1)
Quarter: 2021Q4

REPORT INFORMATION
  Report Type: Spontaneous
  Country: US (occurrence: US)
  Receive Date: 20211014
  Receipt Date: 20211014
  Transmission Date: 20220303
  Serious: Yes (Life-Threatening, Hospitalization, Disabling, Other)
  Sender: FDA-Public Use
  Company Number: None

PATIENT
  Age: 14 Year
  Sex: Female
  Weight: 56.25 kg

DRUGS (6)
  1. METHAZOLAMIDE [Suspect]
     Active Substance: METHAZOLAMIDE
     Indication: Idiopathic intracranial hypertension
     Route: 048
     Dates: start: 20211012, end: 20211014
  2. EPIPEN [Concomitant]
     Active Substance: EPINEPHRINE
  3. ALBUTEROL [Concomitant]
     Active Substance: ALBUTEROL
  4. TMC CREAM [Concomitant]
  5. MAGTEIN [Concomitant]
  6. ZYRTEC [Concomitant]
     Active Substance: CETIRIZINE HYDROCHLORIDE

REACTIONS (17)
  - Orthostatic hypotension [None]
  - Dizziness [None]
  - Vomiting [None]
  - Syncope [None]
  - Lethargy [None]
  - Confusional state [None]
  - Asthenia [None]
  - Gait inability [None]
  - Coordination abnormal [None]
  - Tachypnoea [None]
  - Hyperlactacidaemia [None]
  - Anion gap increased [None]
  - Hypovolaemia [None]
  - Abdominal pain [None]
  - Urinary incontinence [None]
  - Bradycardia [None]
  - Chills [None]

NARRATIVE: CASE EVENT DATE: 20211012
